FAERS Safety Report 18132408 (Version 3)
Quarter: 2021Q1

REPORT INFORMATION
  Report Type: Spontaneous
  Country: US (occurrence: US)
  Receive Date: 20200811
  Receipt Date: 20210326
  Transmission Date: 20210419
  Serious: No
  Sender: FDA-Public Use
  Company Number: US-SA-2020SA206034

PATIENT
  Age: 49 Year
  Sex: Male

DRUGS (10)
  1. TESTOSTERONE. [Concomitant]
     Active Substance: TESTOSTERONE
  2. AUGMENTED BETAMETHASONE DIPROPIONATE [Concomitant]
  3. TESTOSTERONE. [Concomitant]
     Active Substance: TESTOSTERONE
  4. WIXELA INHUB [Concomitant]
     Active Substance: FLUTICASONE PROPIONATE\SALMETEROL XINAFOATE
  5. MONTELUKAST [Concomitant]
     Active Substance: MONTELUKAST SODIUM
  6. DUPIXENT [Suspect]
     Active Substance: DUPILUMAB
     Indication: DERMATITIS ATOPIC
     Dosage: 300 MG, QOW
     Route: 058
     Dates: start: 20200528
  7. ALBUTEROL [SALBUTAMOL] [Concomitant]
     Active Substance: ALBUTEROL
  8. ZOLPIDEM [Concomitant]
     Active Substance: ZOLPIDEM TARTRATE
  9. LISINOPRIL. [Concomitant]
     Active Substance: LISINOPRIL
  10. HCTZ [Concomitant]
     Active Substance: HYDROCHLOROTHIAZIDE

REACTIONS (6)
  - Musculoskeletal stiffness [Not Recovered/Not Resolved]
  - Rash [Not Recovered/Not Resolved]
  - Sleep disorder [Not Recovered/Not Resolved]
  - Erythema [Not Recovered/Not Resolved]
  - Peripheral swelling [Not Recovered/Not Resolved]
  - Dermatitis atopic [Not Recovered/Not Resolved]

NARRATIVE: CASE EVENT DATE: 202008
